FAERS Safety Report 7850818-8 (Version None)
Quarter: 2011Q4

REPORT INFORMATION
  Report Type: 
  Country: None (occurrence: None)
  Receive Date: 20111026
  Receipt Date: 20111017
  Transmission Date: 20120403
  Serious: Yes (Other)
  Sender: FDA-Public Use
  Company Number: US-BAYER-2011-100741

PATIENT
  Age: 34 Year
  Sex: Female

DRUGS (1)
  1. MIRENA [Suspect]
     Indication: CONTRACEPTION
     Dosage: UNK
     Dates: start: 20110928, end: 20110928

REACTIONS (4)
  - POST PROCEDURAL HAEMORRHAGE [None]
  - DEVICE DIFFICULT TO USE [None]
  - UTERINE CERVICAL PAIN [None]
  - UTERINE SPASM [None]
